FAERS Safety Report 5766462-2 (Version None)
Quarter: 2008Q2

REPORT INFORMATION
  Report Type: 
  Country: None (occurrence: None)
  Receive Date: 20080606
  Receipt Date: 20080526
  Transmission Date: 20081010
  Serious: Yes (Hospitalization)
  Sender: FDA-Public Use
  Company Number: DSA_31928_2008

PATIENT
  Sex: Female

DRUGS (2)
  1. LORAZEPAM [Suspect]
     Dosage: (4 MG 1X MG, ORAL
     Route: 048
     Dates: start: 20080523, end: 20080523
  2. DOXEPIN (DOXEPIN) 50 MG [Suspect]
     Dosage: (250 MG 1X ORAL)
     Route: 048
     Dates: start: 20080523, end: 20080523

REACTIONS (5)
  - DYSARTHRIA [None]
  - FATIGUE [None]
  - GASTROINTESTINAL SOUNDS ABNORMAL [None]
  - MULTIPLE DRUG OVERDOSE INTENTIONAL [None]
  - SUICIDE ATTEMPT [None]
